FAERS Safety Report 19287693 (Version 1)
Quarter: 2021Q2

REPORT INFORMATION
  Report Type: Spontaneous
  Country: US (occurrence: US)
  Receive Date: 20210522
  Receipt Date: 20210522
  Transmission Date: 20210717
  Serious: No
  Sender: FDA-Public Use
  Company Number: US-RADIUS HEALTH INC.-2020US001669

PATIENT
  Age: 71 Year
  Sex: Female

DRUGS (7)
  1. TYMLOS [Suspect]
     Active Substance: ABALOPARATIDE
     Indication: OSTEOPOROSIS
     Dosage: 80 MCG, DAILY
     Route: 058
     Dates: start: 20191213
  2. COLCHICINE. [Concomitant]
     Active Substance: COLCHICINE
     Indication: PRODUCT USED FOR UNKNOWN INDICATION
     Dosage: 0.6 MG, UNK
  3. ALGAL 900 DHA [Concomitant]
     Indication: PRODUCT USED FOR UNKNOWN INDICATION
     Dosage: 300 MG, UNK
  4. CETIRIZINE HCL [Concomitant]
     Active Substance: CETIRIZINE HYDROCHLORIDE
     Indication: PRODUCT USED FOR UNKNOWN INDICATION
     Dosage: 10 MG, UNK
  5. GAS RELIEF [Concomitant]
     Active Substance: DIMETHICONE
     Indication: PRODUCT USED FOR UNKNOWN INDICATION
  6. PRENATAL VITAMINS [ASCORBIC ACID;CALCIUM PANTOTHENATE;CYANOCOBALAMIN;E [Concomitant]
     Indication: PRODUCT USED FOR UNKNOWN INDICATION
  7. TYMLOS [Suspect]
     Active Substance: ABALOPARATIDE
     Dosage: 80 MCG, DAILY
     Route: 058
     Dates: start: 20191213

REACTIONS (6)
  - Flatulence [Unknown]
  - Abdominal distension [Recovered/Resolved]
  - Abdominal pain upper [Unknown]
  - Injection site bruising [Unknown]
  - Abdominal discomfort [Recovered/Resolved]
  - Incorrect product administration duration [Recovered/Resolved]

NARRATIVE: CASE EVENT DATE: 202003
